FAERS Safety Report 5229663-8 (Version None)
Quarter: 2007Q1

REPORT INFORMATION
  Report Type: 
  Country: None (occurrence: None)
  Receive Date: 20070201
  Receipt Date: 20070122
  Transmission Date: 20070707
  Serious: Yes (Hospitalization)
  Sender: FDA-Public Use
  Company Number: A0624091B

PATIENT
  Age: 70 Year
  Sex: Female
  Weight: 47.4009 kg

DRUGS (6)
  1. DARVOCET-N 100 [Suspect]
     Dosage: 750 MG;QD;PO
     Route: 048
     Dates: start: 20061205
  2. LAPATINIB [Suspect]
     Indication: BREAST CANCER METASTATIC
     Dosage: 750 MG;QD;PO
     Route: 048
     Dates: start: 20061002
  3. CARVEDILOL [Concomitant]
  4. FENTANYL [Concomitant]
  5. ASPIRIN [Concomitant]
  6. CAPECITABINE [Suspect]
     Indication: BREAST CANCER METASTATIC
     Dosage: 2000 MG;QD;PO
     Route: 048
     Dates: start: 20061002, end: 20061123

REACTIONS (4)
  - ASTHENIA [None]
  - CONFUSIONAL STATE [None]
  - DECREASED APPETITE [None]
  - HALLUCINATION [None]
